FAERS Safety Report 23633064 (Version 1)
Quarter: 2024Q1

REPORT INFORMATION
  Report Type: Spontaneous
  Country: AU (occurrence: AU)
  Receive Date: 20240314
  Receipt Date: 20240314
  Transmission Date: 20240410
  Serious: Yes (Other)
  Sender: FDA-Public Use
  Company Number: AU-WOODWARD-2024-AU-000157

PATIENT
  Age: 49 Year
  Sex: 0

DRUGS (5)
  1. RABEPRAZOLE SODIUM [Suspect]
     Active Substance: RABEPRAZOLE SODIUM
     Indication: Product used for unknown indication
     Dosage: UNKNOWN DOSE AND FREQUENCY
     Route: 048
  2. ATORVASTATIN CALCIUM [Suspect]
     Active Substance: ATORVASTATIN CALCIUM
     Dosage: UNKNOWN DOSE AND FREQUENCY
  3. CITALOPRAM HYDROBROMIDE [Suspect]
     Active Substance: CITALOPRAM HYDROBROMIDE
     Dosage: UNKNOWN DOSE AND FREQUENCY
  4. DIAZEPAM [Suspect]
     Active Substance: DIAZEPAM
     Dosage: UNKNOWN DOSE AND FREQUENCY
  5. PROPRANOLOL HYDROCHLORIDE [Suspect]
     Active Substance: PROPRANOLOL HYDROCHLORIDE
     Dosage: UNKNOWN DOSE AND FREQUENCY

REACTIONS (12)
  - Blood glucose increased [Unknown]
  - Diarrhoea [Unknown]
  - Blood urea abnormal [Unknown]
  - Blood calcium abnormal [Unknown]
  - Electrocardiogram ST-T change [Unknown]
  - Electrocardiogram QT prolonged [Unknown]
  - QRS axis abnormal [Unknown]
  - Left ventricular hypertrophy [Unknown]
  - Blood prolactin abnormal [Unknown]
  - Liver function test abnormal [Unknown]
  - Orthostatic hypotension [Unknown]
  - Vitamin D abnormal [Unknown]
